FAERS Safety Report 23012523 (Version 3)
Quarter: 2024Q3

REPORT INFORMATION
  Report Type: Spontaneous
  Country: US (occurrence: US)
  Receive Date: 20230930
  Receipt Date: 20240830
  Transmission Date: 20241016
  Serious: No
  Sender: SANOFI AVENTIS
  Company Number: US-SA-SAC20230926000156

PATIENT
  Age: 59 Year
  Sex: Male
  Weight: 86.18 kg

DRUGS (2)
  1. DUPIXENT [Suspect]
     Active Substance: DUPILUMAB
     Indication: Neurodermatitis
     Dosage: 300 MG, QOW
     Route: 058
     Dates: start: 20230802
  2. DUPIXENT [Suspect]
     Active Substance: DUPILUMAB
     Indication: Dermatitis atopic

REACTIONS (12)
  - Eczema [Recovering/Resolving]
  - Rash pruritic [Recovering/Resolving]
  - Dry skin [Recovering/Resolving]
  - Skin depigmentation [Recovering/Resolving]
  - Feeling cold [Recovering/Resolving]
  - Sleep disorder [Recovering/Resolving]
  - Skin fissures [Recovering/Resolving]
  - Skin haemorrhage [Recovering/Resolving]
  - Hyperhidrosis [Unknown]
  - Skin exfoliation [Recovering/Resolving]
  - Pruritus [Not Recovered/Not Resolved]
  - Injection site pain [Recovering/Resolving]

NARRATIVE: CASE EVENT DATE: 20230101
